FAERS Safety Report 4988199-X (Version None)
Quarter: 2006Q2

REPORT INFORMATION
  Report Type: 
  Country: None (occurrence: None)
  Receive Date: 20060501
  Receipt Date: 20060418
  Transmission Date: 20061013
  Serious: Yes (Hospitalization)
  Sender: FDA-Public Use
  Company Number: PL-MERCK-0604POL00009

PATIENT
  Age: 16 Year
  Sex: Male

DRUGS (1)
  1. SINGULAIR [Suspect]
     Indication: ASTHMA
     Route: 048
     Dates: start: 20050101, end: 20060101

REACTIONS (4)
  - INFECTION [None]
  - LEUKOPENIA [None]
  - NASOPHARYNGITIS [None]
  - THROMBOCYTOPENIA [None]
